FAERS Safety Report 5087489-2 (Version None)
Quarter: 2006Q3

REPORT INFORMATION
  Report Type: 
  Country: None (occurrence: None)
  Receive Date: 20060727
  Receipt Date: 20060428
  Transmission Date: 20061208
  Serious: Yes (Other)
  Sender: FDA-Public Use
  Company Number: 2006058732

PATIENT
  Age: 68 Year
  Sex: Female
  Weight: 54.4316 kg

DRUGS (4)
  1. LYRICA [Suspect]
     Indication: TRIGEMINAL NEURALGIA
     Dosage: 50 MG (50 MG, 1 IN 1 D)
     Dates: start: 20050101
  2. ULTRAM [Concomitant]
  3. TRAZODONE CALCIUM [Concomitant]
  4. ESTROGENS [Concomitant]

REACTIONS (3)
  - DRUG INEFFECTIVE [None]
  - PRURITUS [None]
  - WEIGHT INCREASED [None]
